FAERS Safety Report 9258915 (Version 1)
Quarter: 2013Q2

REPORT INFORMATION
  Report Type: Spontaneous
  Country: ES (occurrence: ES)
  Receive Date: 20130426
  Receipt Date: 20130426
  Transmission Date: 20140414
  Serious: Yes (Hospitalization)
  Sender: FDA-Public Use
  Company Number: ES-ELI_LILLY_AND_COMPANY-ES201304006657

PATIENT
  Sex: Female

DRUGS (1)
  1. FORSTEO [Suspect]
     Indication: OSTEOPOROSIS
     Dosage: 20 UG, QD
     Route: 058
     Dates: start: 201301, end: 20130305

REACTIONS (6)
  - Pulmonary fistula [Not Recovered/Not Resolved]
  - Infectious pleural effusion [Unknown]
  - Pneumothorax [Unknown]
  - Pulmonary fistula [Not Recovered/Not Resolved]
  - Infectious pleural effusion [Unknown]
  - Pneumothorax [Unknown]
